FAERS Safety Report 14046932 (Version 2)
Quarter: 2017Q4

REPORT INFORMATION
  Report Type: Spontaneous
  Country: US (occurrence: US)
  Receive Date: 20171005
  Receipt Date: 20171016
  Transmission Date: 20180321
  Serious: No
  Sender: FDA-Public Use
  Company Number: US-PFIZER INC-2017425644

PATIENT
  Age: 57 Year
  Sex: Female

DRUGS (24)
  1. FLUOXETINE [Suspect]
     Active Substance: FLUOXETINE HYDROCHLORIDE
     Dosage: UNK
  2. ZONISAMIDE. [Suspect]
     Active Substance: ZONISAMIDE
     Dosage: UNK
  3. CHANTIX [Suspect]
     Active Substance: VARENICLINE TARTRATE
     Dosage: UNK
  4. ADVAIR HFA [Suspect]
     Active Substance: FLUTICASONE PROPIONATE\SALMETEROL XINAFOATE
     Dosage: UNK
  5. DIVALPROEX [Suspect]
     Active Substance: DIVALPROEX SODIUM
     Dosage: UNK
  6. FLUTICASONE W/SALMETEROL [Suspect]
     Active Substance: FLUTICASONE PROPIONATE\SALMETEROL XINAFOATE
     Dosage: UNK
  7. PROZAC [Suspect]
     Active Substance: FLUOXETINE HYDROCHLORIDE
     Dosage: UNK
  8. PHENTERMINE. [Suspect]
     Active Substance: PHENTERMINE
     Dosage: UNK
  9. DEPAKOTE [Suspect]
     Active Substance: DIVALPROEX SODIUM
     Dosage: UNK
  10. LAMOTRIGINE. [Suspect]
     Active Substance: LAMOTRIGINE
     Dosage: UNK
  11. EPINEPHRINE. [Suspect]
     Active Substance: EPINEPHRINE
     Dosage: UNK
  12. DONEPEZIL HCL [Suspect]
     Active Substance: DONEPEZIL HYDROCHLORIDE
     Dosage: UNK
  13. ZIPRASIDONE HCL [Suspect]
     Active Substance: ZIPRASIDONE HYDROCHLORIDE
     Dosage: UNK
  14. PHENIRAMINE [Suspect]
     Active Substance: PHENIRAMINE
     Dosage: UNK
  15. TORECAN [Suspect]
     Active Substance: THIETHYLPERAZINE MALATE
     Dosage: UNK
  16. ZONEGRAN [Suspect]
     Active Substance: ZONISAMIDE
     Dosage: UNK
  17. QUETIAPINE. [Suspect]
     Active Substance: QUETIAPINE
  18. ONDANSETRON HCL [Suspect]
     Active Substance: ONDANSETRON HYDROCHLORIDE
     Dosage: UNK
  19. THIETHYLPERAZINE [Suspect]
     Active Substance: THIETHYLPERAZINE
     Dosage: UNK
  20. VARENICLINE TARTRATE [Suspect]
     Active Substance: VARENICLINE TARTRATE
     Dosage: UNK
  21. CIPROFLOXACIN. [Suspect]
     Active Substance: CIPROFLOXACIN
     Dosage: UNK
  22. ARICEPT [Suspect]
     Active Substance: DONEPEZIL HYDROCHLORIDE
     Dosage: UNK
  23. SEROQUEL [Suspect]
     Active Substance: QUETIAPINE FUMARATE
     Dosage: UNK
  24. THIETHYLPERAZINE MALEATE [Suspect]
     Active Substance: THIETHYLPERAZINE MALEATE
     Dosage: UNK

REACTIONS (1)
  - Drug hypersensitivity [Unknown]
